FAERS Safety Report 16521250 (Version 1)
Quarter: 2019Q3

REPORT INFORMATION
  Report Type: Other
  Country: GB (occurrence: GB)
  Receive Date: 20190703
  Receipt Date: 20190703
  Transmission Date: 20191004
  Serious: No
  Sender: FDA-Public Use
  Company Number: GB-LUPIN PHARMACEUTICALS INC.-2018-06252

PATIENT
  Age: 64 Year
  Sex: Female
  Weight: 93 kg

DRUGS (11)
  1. CANDESARTAN. [Concomitant]
     Active Substance: CANDESARTAN
     Indication: BLOOD PRESSURE ABNORMAL
     Dosage: UNK UNK, QD (TAKE ONE DAILY)
     Route: 065
     Dates: start: 20171218
  2. METFORMIN [Concomitant]
     Active Substance: METFORMIN HYDROCHLORIDE
     Indication: ILL-DEFINED DISORDER
     Dosage: 2 DF, BID
     Route: 065
     Dates: start: 20180613
  3. SIMVASTATIN. [Suspect]
     Active Substance: SIMVASTATIN
     Dosage: UNK
     Route: 065
     Dates: start: 20180816
  4. COCODAMOL [Concomitant]
     Active Substance: ACETAMINOPHEN\CODEINE PHOSPHATE
     Indication: ILL-DEFINED DISORDER
     Dosage: UNK, PRN (2 TO BE TAKEN FOUR TIMES DAILY WHEN REQUIRED)
     Route: 065
     Dates: start: 20180525, end: 20180622
  5. NAPROXEN. [Concomitant]
     Active Substance: NAPROXEN
     Indication: PAIN
     Dosage: UNK, BID (TAKE ONE TWICE DAILY)
     Route: 065
     Dates: start: 20180613, end: 20180711
  6. IBUPROFEN. [Concomitant]
     Active Substance: IBUPROFEN
     Indication: ILL-DEFINED DISORDER
     Dosage: UNK, TID (APPLY THREE TIMES DAILY)
     Route: 065
     Dates: start: 20180525, end: 20180526
  7. SUKKARTO [Concomitant]
     Active Substance: METFORMIN HYDROCHLORIDE
     Indication: DIABETES MELLITUS
     Dosage: UNK UNK, BID (TAKE TWICE DAILY WITH MAIN MEAL)
     Route: 065
     Dates: start: 20180328, end: 20180612
  8. OMEPRAZOLE. [Concomitant]
     Active Substance: OMEPRAZOLE
     Indication: ILL-DEFINED DISORDER
     Dosage: UNK, QD
     Route: 065
     Dates: start: 20180110
  9. PRAVASTATIN. [Concomitant]
     Active Substance: PRAVASTATIN
     Indication: ILL-DEFINED DISORDER
     Dosage: UNK, QD (TAKE ONE AT NIGHT)
     Route: 065
     Dates: start: 20180816
  10. AMITRIPTYLINE HYDROCHLORIDE. [Concomitant]
     Active Substance: AMITRIPTYLINE HYDROCHLORIDE
     Indication: ILL-DEFINED DISORDER
     Dosage: UNK (TAKE 1-2 TABS NIGHT)
     Route: 065
     Dates: start: 20180816
  11. FENBID [Concomitant]
     Active Substance: IBUPROFEN
     Indication: PAIN
     Dosage: UNK, TID (APPLY)
     Route: 065
     Dates: start: 20180625

REACTIONS (1)
  - Pain in extremity [Recovering/Resolving]

NARRATIVE: CASE EVENT DATE: 20180816
